FAERS Safety Report 9310241 (Version 1)
Quarter: 2013Q2

REPORT INFORMATION
  Report Type: Report from Study
  Country: AU (occurrence: AU)
  Receive Date: 20130527
  Receipt Date: 20130527
  Transmission Date: 20140414
  Serious: Yes (Hospitalization)
  Sender: FDA-Public Use
  Company Number: PHHY2013AU052206

PATIENT
  Age: 85 Year
  Sex: Female

DRUGS (2)
  1. ACLASTA [Suspect]
     Dosage: 5 MG/100ML, UNK
     Route: 042
     Dates: start: 20120427
  2. ACLASTA [Suspect]
     Dosage: 5 MG/100ML, UNK
     Route: 042
     Dates: start: 20130521

REACTIONS (8)
  - Loss of consciousness [Unknown]
  - Bradycardia [Unknown]
  - Dyspnoea [Unknown]
  - Blood pressure decreased [Unknown]
  - Pallor [Unknown]
  - Incorrect dose administered [Unknown]
  - Malaise [Unknown]
  - Anxiety [Unknown]
